FAERS Safety Report 4358985-8 (Version None)
Quarter: 2004Q2

REPORT INFORMATION
  Report Type: 
  Country: None (occurrence: None)
  Receive Date: 20040512
  Receipt Date: 20040427
  Transmission Date: 20050107
  Serious: Yes (Hospitalization)
  Sender: FDA-Public Use
  Company Number: US_0404102691

PATIENT
  Age: 64 Year
  Sex: Female
  Weight: 114 kg

DRUGS (3)
  1. FORTEO [Suspect]
     Indication: BONE DENSITY DECREASED
  2. HUMALOG [Suspect]
     Indication: BLOOD GLUCOSE INCREASED
     Dosage: 70 U DAY
     Dates: start: 20021001, end: 20040201
  3. HUMALOG [Suspect]
     Indication: DIABETES MELLITUS
     Dosage: 70 U DAY
     Dates: start: 20021001, end: 20040201

REACTIONS (9)
  - ARTHRALGIA [None]
  - BONE DENSITY DECREASED [None]
  - CATHETER RELATED COMPLICATION [None]
  - FEELING ABNORMAL [None]
  - PHARMACEUTICAL PRODUCT COMPLAINT [None]
  - PNEUMONIA [None]
  - THROMBOSIS [None]
  - VEIN DISORDER [None]
  - WEIGHT INCREASED [None]
